FAERS Safety Report 24957515 (Version 1)
Quarter: 2025Q1

REPORT INFORMATION
  Report Type: Spontaneous
  Country: US (occurrence: US)
  Receive Date: 20250212
  Receipt Date: 20250212
  Transmission Date: 20250408
  Serious: No
  Sender: JOHNSON AND JOHNSON
  Company Number: US-JNJFOC-20250182472

PATIENT
  Sex: Female

DRUGS (11)
  1. STELARA [Suspect]
     Active Substance: USTEKINUMAB
     Indication: Product used for unknown indication
  2. DEXILANT [Concomitant]
     Active Substance: DEXLANSOPRAZOLE
  3. ALUMINUM HYDROXIDE\MAGNESIUM CARBONATE [Concomitant]
     Active Substance: ALUMINUM HYDROXIDE\MAGNESIUM CARBONATE
  4. DULOXETINE [Concomitant]
     Active Substance: DULOXETINE
  5. EPINEPHRINE [Concomitant]
     Active Substance: EPINEPHRINE
  6. FUROSEMIDE [Concomitant]
     Active Substance: FUROSEMIDE
  7. MONTELUKAST [Concomitant]
     Active Substance: MONTELUKAST
  8. PREGABALIN [Concomitant]
     Active Substance: PREGABALIN
  9. TOPIRAMATE [Concomitant]
     Active Substance: TOPIRAMATE
  10. TRAMADOL [Concomitant]
     Active Substance: TRAMADOL
  11. TRAMADOL [Concomitant]
     Active Substance: TRAMADOL

REACTIONS (1)
  - Mouth ulceration [Unknown]
